FAERS Safety Report 4505899-6 (Version None)
Quarter: 2004Q4

REPORT INFORMATION
  Report Type: 
  Country: None (occurrence: None)
  Receive Date: 20041025
  Receipt Date: 20040323
  Transmission Date: 20050328
  Serious: Yes (Life-Threatening)
  Sender: FDA-Public Use
  Company Number: US-JNJFOC-20040300071

PATIENT
  Age: 20 Year
  Sex: Male
  Weight: 54.4316 kg

DRUGS (7)
  1. REMICADE [Suspect]
     Indication: CROHN'S DISEASE
     Dosage: 273 MG INTRAVENOUS
     Route: 042
     Dates: start: 20040203, end: 20040203
  2. REMICADE [Suspect]
     Indication: CROHN'S DISEASE
     Dosage: 273 MG INTRAVENOUS
     Route: 042
     Dates: start: 20040224, end: 20040224
  3. AZATHIOPRINE [Concomitant]
  4. CALCIUM (CALCIUM) [Concomitant]
  5. PENTASA [Concomitant]
  6. PREDNISONE (PROCAINAMIDE HYDROCHLORIDE) [Concomitant]
  7. PROTONIX [Concomitant]

REACTIONS (1)
  - ANAPHYLACTIC REACTION [None]
